FAERS Safety Report 8420926-1 (Version None)
Quarter: 2012Q2

REPORT INFORMATION
  Report Type: 
  Country: None (occurrence: None)
  Receive Date: 20120531
  Receipt Date: 20120517
  Transmission Date: 20120825
  Serious: Yes (Hospitalization)
  Sender: FDA-Public Use
  Company Number: 2012AP001504

PATIENT
  Age: 69 Year
  Sex: Male

DRUGS (2)
  1. ASPIRIN [Suspect]
     Indication: ANTIPLATELET THERAPY
     Dosage: 100 MG;QD
  2. CLOPIDEGREL [Suspect]
     Indication: ANTIPLATELET THERAPY
     Dosage: 75 MG;QD

REACTIONS (9)
  - THROMBOSIS IN DEVICE [None]
  - THERAPEUTIC RESPONSE DECREASED [None]
  - INTERMITTENT CLAUDICATION [None]
  - FEMORAL ARTERY OCCLUSION [None]
  - DEVICE OCCLUSION [None]
  - HAEMATOCRIT DECREASED [None]
  - PLATELET COUNT DECREASED [None]
  - ARTERIAL STENOSIS [None]
  - RED BLOOD CELL COUNT DECREASED [None]
